FAERS Safety Report 5801176-1 (Version None)
Quarter: 2008Q3

REPORT INFORMATION
  Report Type: 
  Country: None (occurrence: None)
  Receive Date: 20080707
  Receipt Date: 20080623
  Transmission Date: 20090109
  Serious: Yes (Hospitalization)
  Sender: FDA-Public Use
  Company Number: FR-ELI_LILLY_AND_COMPANY-FR200806005554

PATIENT
  Age: 34 Year
  Sex: Male

DRUGS (3)
  1. ZYPREXA [Suspect]
     Indication: PSYCHOTIC DISORDER
     Dosage: 10 MG, DAILY (1/D)
     Route: 048
  2. LOXAPINE HCL [Concomitant]
  3. VALIUM [Concomitant]

REACTIONS (1)
  - BONE MARROW FAILURE [None]
